FAERS Safety Report 5820596-2 (Version None)
Quarter: 2008Q3

REPORT INFORMATION
  Report Type: 
  Country: None (occurrence: None)
  Receive Date: 20080724
  Receipt Date: 20071121
  Transmission Date: 20090109
  Serious: No
  Sender: FDA-Public Use
  Company Number: A0695635A

PATIENT
  Age: 53 Year
  Sex: Female

DRUGS (12)
  1. AVANDIA [Suspect]
     Dosage: 4MG PER DAY
     Route: 048
     Dates: start: 20061101, end: 20070806
  2. CLONIDINE [Concomitant]
  3. XANAX [Concomitant]
  4. LOZOL [Concomitant]
  5. FOLIC ACID [Concomitant]
  6. CAPTOPRIL [Concomitant]
  7. GLIBURIDE [Concomitant]
  8. ZANTAC OTC [Concomitant]
  9. KLOR-CON [Concomitant]
  10. AMITRIPTYLINE HCL [Concomitant]
  11. ACTON [Concomitant]
  12. METOPROLOL TARTRATE [Concomitant]

REACTIONS (1)
  - HEADACHE [None]
